FAERS Safety Report 6089634-9 (Version None)
Quarter: 2009Q1

REPORT INFORMATION
  Report Type: 
  Country: None (occurrence: None)
  Receive Date: 20090219
  Receipt Date: 20090219
  Transmission Date: 20090719
  Serious: Yes (Hospitalization)
  Sender: FDA-Public Use
  Company Number: None

PATIENT
  Sex: Female
  Weight: 121.9 kg

DRUGS (3)
  1. METHOTREXATE [Suspect]
     Dosage: 1732 MG
  2. PEG-L-ASPARAGINASE (K-H) [Suspect]
     Dosage: 12150 IU
  3. VINCRISTINE SULFATE [Suspect]
     Dosage: 10 MG

REACTIONS (8)
  - DYSPHAGIA [None]
  - MENORRHAGIA [None]
  - MOUTH HAEMORRHAGE [None]
  - MOUTH ULCERATION [None]
  - MUCOSAL INFLAMMATION [None]
  - THROMBOCYTOPENIA [None]
  - TREATMENT NONCOMPLIANCE [None]
  - VAGINAL HAEMORRHAGE [None]
